FAERS Safety Report 4563621-1 (Version None)
Quarter: 2005Q1

REPORT INFORMATION
  Report Type: 
  Country: None (occurrence: None)
  Receive Date: 20050128
  Receipt Date: 20050124
  Transmission Date: 20050727
  Serious: Yes (Hospitalization)
  Sender: FDA-Public Use
  Company Number: PHBS2005FI01294

PATIENT
  Age: 49 Year
  Sex: Female

DRUGS (5)
  1. LEPONEX [Suspect]
     Indication: PSYCHOTIC DISORDER
     Route: 048
     Dates: start: 20030225
  2. LEPONEX [Suspect]
     Dosage: 350 MG/D
     Route: 048
     Dates: start: 19750506, end: 19750729
  3. LEPONEX [Suspect]
     Dosage: 600 MG/D
     Route: 048
     Dates: start: 20041119, end: 20050105
  4. LORAZEPAM [Concomitant]
     Indication: ANXIETY
     Dosage: 1.5 MG/D
     Route: 065
     Dates: start: 20030605
  5. CIPRAMIL [Concomitant]
     Indication: DEPRESSION
     Dosage: 40 MG/D
     Route: 065
     Dates: start: 20030423

REACTIONS (6)
  - AGRANULOCYTOSIS [None]
  - LEUKOPENIA [None]
  - PERITONITIS [None]
  - SURGERY [None]
  - ULCER [None]
  - WOUND INFECTION [None]
